FAERS Safety Report 5360163-0 (Version None)
Quarter: 2007Q2

REPORT INFORMATION
  Report Type: 
  Country: None (occurrence: None)
  Receive Date: 20070618
  Receipt Date: 20070607
  Transmission Date: 20071010
  Serious: Yes (Hospitalization, Other)
  Sender: FDA-Public Use
  Company Number: PHHO2007RU09039

PATIENT
  Age: 62 Year
  Sex: Female
  Weight: 88.8 kg

DRUGS (1)
  1. VEA489 VS VAH631 VS VAA489 VS HCTZ/AMLOD [Suspect]
     Indication: HYPERTENSION
     Dosage: DOUBLE-BLIND
     Route: 048
     Dates: start: 20070502

REACTIONS (2)
  - PAPILLARY THYROID CANCER [None]
  - THYROIDECTOMY [None]
